FAERS Safety Report 7913869-0 (Version None)
Quarter: 2011Q4

REPORT INFORMATION
  Report Type: 
  Country: None (occurrence: None)
  Receive Date: 20111115
  Receipt Date: 20111108
  Transmission Date: 20120403
  Serious: Yes (Other)
  Sender: FDA-Public Use
  Company Number: GB-PFIZER INC-2011243747

PATIENT
  Age: 37 Year
  Sex: Male
  Weight: 95.2 kg

DRUGS (1)
  1. VARENICLINE TARTRATE [Suspect]
     Indication: SMOKING CESSATION THERAPY
     Dosage: 1 MG, 2X/DAY
     Route: 048
     Dates: start: 20110826, end: 20110930

REACTIONS (9)
  - IRRITABILITY [None]
  - HEADACHE [None]
  - THINKING ABNORMAL [None]
  - HYPERTENSION [None]
  - DEPRESSION [None]
  - AGGRESSION [None]
  - ANGER [None]
  - AMNESIA [None]
  - ANXIETY [None]
